FAERS Safety Report 7381633-X (Version None)
Quarter: 2011Q1

REPORT INFORMATION
  Report Type: 
  Country: None (occurrence: None)
  Receive Date: 20110329
  Receipt Date: 20110324
  Transmission Date: 20110831
  Serious: Yes (Hospitalization)
  Sender: FDA-Public Use
  Company Number: BR-GILEAD-2011-0037840

PATIENT
  Sex: Male
  Weight: 53 kg

DRUGS (7)
  1. ISONIAZID [Suspect]
     Indication: TUBERCULOSIS
     Dates: start: 20110222, end: 20110323
  2. TENOFOVIR DISOPROXIL FUMARATE [Suspect]
     Indication: HIV INFECTION
  3. EFAVIRENZ [Concomitant]
     Indication: HIV INFECTION
  4. PYRIDOXINE [Concomitant]
     Dates: start: 20110222, end: 20110323
  5. SULFAMETHOXAZOLE [Concomitant]
     Indication: ANTIFUNGAL PROPHYLAXIS
     Dates: start: 20110222, end: 20110323
  6. RIFAMPIN [Suspect]
     Indication: TUBERCULOSIS
     Dates: start: 20110222, end: 20110323
  7. LAMIVUDINE [Concomitant]
     Indication: HIV INFECTION

REACTIONS (1)
  - HEPATOTOXICITY [None]
